FAERS Safety Report 10882772 (Version 1)
Quarter: 2015Q1

REPORT INFORMATION
  Report Type: Spontaneous
  Country: US (occurrence: None)
  Receive Date: 20150226
  Receipt Date: 20150226
  Transmission Date: 20150721
  Serious: Yes (Other)
  Sender: FDA-Public Use
  Company Number: None

PATIENT
  Age: 68 Year
  Sex: Male
  Weight: 74.84 kg

DRUGS (1)
  1. NADOLOL. [Suspect]
     Active Substance: NADOLOL
     Indication: BLOOD PRESSURE
     Dosage: 20 MG, 1 TAB DAILY, ONCE DAILY, BY MOUTH
     Route: 048
     Dates: start: 20150130, end: 20150220

REACTIONS (2)
  - Heart rate increased [None]
  - Feeling cold [None]

NARRATIVE: CASE EVENT DATE: 20150130
